FAERS Safety Report 5023783-9 (Version None)
Quarter: 2006Q2

REPORT INFORMATION
  Report Type: 
  Country: None (occurrence: None)
  Receive Date: 20060612
  Receipt Date: 20060531
  Transmission Date: 20061013
  Serious: Yes (Hospitalization)
  Sender: FDA-Public Use
  Company Number: DE-BRISTOL-MYERS SQUIBB COMPANY-13407069

PATIENT
  Age: 59 Year
  Sex: Male

DRUGS (3)
  1. ERBITUX [Suspect]
     Indication: COLORECTAL CANCER METASTATIC
     Route: 042
  2. CAPECITABINE [Suspect]
     Indication: COLORECTAL CANCER METASTATIC
     Route: 048
  3. OXALIPLATIN [Suspect]
     Indication: COLORECTAL CANCER METASTATIC
     Route: 042

REACTIONS (1)
  - HAEMATOCHEZIA [None]
